FAERS Safety Report 19693445 (Version 2)
Quarter: 2021Q3

REPORT INFORMATION
  Report Type: Spontaneous
  Country: US (occurrence: US)
  Receive Date: 20210813
  Receipt Date: 20210818
  Transmission Date: 20211014
  Serious: Yes (Other)
  Sender: FDA-Public Use
  Company Number: US-DRREDDYS-LIT/USA/21/0138773

PATIENT
  Age: 14 Year
  Sex: Female

DRUGS (3)
  1. LORAZEPAM INJECTION USP, 2 MG/ML AND 4 MG/ML [Suspect]
     Active Substance: LORAZEPAM
     Indication: SEROTONIN SYNDROME
  2. LORAZEPAM INJECTION USP, 2 MG/ML AND 4 MG/ML [Suspect]
     Active Substance: LORAZEPAM
     Indication: PROPHYLAXIS
  3. HALOPERIDOL. [Suspect]
     Active Substance: HALOPERIDOL
     Indication: SEROTONIN SYNDROME

REACTIONS (2)
  - Agitation [Recovered/Resolved]
  - Paradoxical drug reaction [Recovered/Resolved]
